FAERS Safety Report 18987154 (Version 2)
Quarter: 2021Q2

REPORT INFORMATION
  Report Type: Spontaneous
  Country: NL (occurrence: PL)
  Receive Date: 20210309
  Receipt Date: 20210504
  Transmission Date: 20210717
  Serious: Yes (Hospitalization)
  Sender: FDA-Public Use
  Company Number: PL-FRESENIUS KABI-FK202102023

PATIENT
  Age: 50 Year
  Sex: Female

DRUGS (11)
  1. METAMIZOLE SODIUM [Suspect]
     Active Substance: METAMIZOLE SODIUM
     Indication: TIBIA FRACTURE
     Dosage: UNK
     Route: 065
  2. POTASSIUM CHLORIDE (MANUFACTURER UNKNOWN) [Suspect]
     Active Substance: POTASSIUM CHLORIDE
     Indication: TIBIA FRACTURE
     Dosage: UNK
     Route: 065
  3. RUTOSIDE/AESCULUS HIPPOCASTANUM SEED [Suspect]
     Active Substance: HORSE CHESTNUT\RUTIN
     Indication: TIBIA FRACTURE
     Dosage: UNK
     Route: 048
  4. LEFLUNOMIDE. [Concomitant]
     Active Substance: LEFLUNOMIDE
     Indication: RHEUMATOID ARTHRITIS
     Dosage: 20 MG DAILY
     Route: 048
     Dates: start: 20200624, end: 20210304
  5. ENOXAPARIN SODIUM. [Suspect]
     Active Substance: ENOXAPARIN SODIUM
     Indication: TIBIA FRACTURE
     Dosage: UNK
     Route: 058
  6. PARACETAMOL [Suspect]
     Active Substance: ACETAMINOPHEN
     Indication: TIBIA FRACTURE
     Dosage: UNK
     Route: 065
  7. SODIUM CHLORIDE (MANUFACTURER UNKNOWN) [Suspect]
     Active Substance: SODIUM CHLORIDE
     Indication: TIBIA FRACTURE
     Dosage: UNK
     Route: 042
  8. TRAMADOL HYDROCHLORIDE. [Suspect]
     Active Substance: TRAMADOL HYDROCHLORIDE
     Indication: TIBIA FRACTURE
     Dosage: UNK
     Route: 065
  9. OPTILYTE [Suspect]
     Active Substance: CALCIUM CHLORIDE\MAGNESIUM CHLORIDE\POTASSIUM CHLORIDE\SODIUM ACETATE\SODIUM CHLORIDE\SODIUM CITRATE
     Indication: TIBIA FRACTURE
     Dosage: UNK
     Route: 042
  10. NIMESULIDE [Concomitant]
     Active Substance: NIMESULIDE
     Indication: RHEUMATOID ARTHRITIS
     Dosage: 100 MG DAILY
     Route: 048
     Dates: start: 20201029
  11. NIMESULIDE [Concomitant]
     Active Substance: NIMESULIDE
     Dosage: 100 MG DAILY
     Route: 048
     Dates: start: 20190420, end: 20201025

REACTIONS (2)
  - Tibia fracture [Recovering/Resolving]
  - Post procedural complication [Not Recovered/Not Resolved]

NARRATIVE: CASE EVENT DATE: 20210206
